FAERS Safety Report 15630041 (Version 1)
Quarter: 2018Q4

REPORT INFORMATION
  Report Type: Spontaneous
  Country: CA (occurrence: CA)
  Receive Date: 20181118
  Receipt Date: 20181118
  Transmission Date: 20190205
  Serious: Yes (Hospitalization)
  Sender: FDA-Public Use
  Company Number: CA-JNJFOC-20181112641

PATIENT
  Age: 64 Year
  Sex: Male
  Weight: 82 kg

DRUGS (3)
  1. MOTRIN [Suspect]
     Active Substance: IBUPROFEN
     Route: 048
  2. MOTRIN [Suspect]
     Active Substance: IBUPROFEN
     Indication: PRODUCT USED FOR UNKNOWN INDICATION
     Route: 048
  3. MODURETIC 5-50 [Concomitant]
     Active Substance: AMILORIDE HYDROCHLORIDE\HYDROCHLOROTHIAZIDE
     Indication: PRODUCT USED FOR UNKNOWN INDICATION
     Route: 048

REACTIONS (3)
  - Haematemesis [Recovered/Resolved]
  - Vomiting [Recovered/Resolved]
  - Abdominal pain [Recovered/Resolved]
